FAERS Safety Report 13002551 (Version 2)
Quarter: 2016Q4

REPORT INFORMATION
  Report Type: Spontaneous
  Country: FR (occurrence: FR)
  Receive Date: 20161206
  Receipt Date: 20161222
  Transmission Date: 20170207
  Serious: Yes (Life-Threatening, Other)
  Sender: FDA-Public Use
  Company Number: FR-BEH-2016075817

PATIENT
  Age: 5 Year
  Sex: Male
  Weight: 18 kg

DRUGS (11)
  1. LAROXYL [Suspect]
     Active Substance: AMITRIPTYLINE
     Indication: ANTIDEPRESSANT THERAPY
     Dosage: 21 UNK, UNK
     Route: 048
     Dates: start: 20161107, end: 20161109
  2. DEBRIDAT                           /00465201/ [Concomitant]
     Active Substance: TRIMEBUTINE MALEATE
  3. ATARAX [Suspect]
     Active Substance: HYDROXYZINE\HYDROXYZINE HYDROCHLORIDE
     Indication: ANXIETY
     Dosage: 5 ML, TOT
     Route: 048
     Dates: start: 20161106, end: 20161107
  4. ETOMIDATE LIPURO [Suspect]
     Active Substance: ETOMIDATE
     Indication: ENDOTRACHEAL INTUBATION
     Dosage: UNK
     Route: 042
     Dates: start: 20161109, end: 20161109
  5. MOVICOL [Concomitant]
     Active Substance: POLYETHYLENE GLYCOL 3350\POTASSIUM CHLORIDE\SODIUM BICARBONATE\SODIUM CHLORIDE
  6. GABAPENTINE [Concomitant]
     Active Substance: GABAPENTIN
  7. PRIVIGEN [Suspect]
     Active Substance: HUMAN IMMUNOGLOBULIN G
     Indication: GUILLAIN-BARRE SYNDROME
     Dosage: 20 G, TOT
     Route: 042
     Dates: start: 20161109, end: 20161109
  8. INEXIUM                            /01479302/ [Concomitant]
     Active Substance: ESOMEPRAZOLE MAGNESIUM
  9. LEVOCARNIL [Concomitant]
     Active Substance: LEVOCARNITINE
  10. BEVITINE [Concomitant]
     Active Substance: THIAMINE
  11. CELOCURINE [Suspect]
     Active Substance: SUCCINYLCHOLINE CHLORIDE
     Indication: ENDOTRACHEAL INTUBATION
     Dosage: 1 MG/KG, UNK
     Route: 042
     Dates: start: 20161109, end: 20161109

REACTIONS (7)
  - Condition aggravated [Recovered/Resolved]
  - Hypertension [Unknown]
  - Tachycardia [Unknown]
  - Hyperhidrosis [Unknown]
  - Hypercapnia [Unknown]
  - Cardio-respiratory arrest [Recovered/Resolved]
  - Torsade de pointes [Recovered/Resolved]

NARRATIVE: CASE EVENT DATE: 20161109
